FAERS Safety Report 17400856 (Version 1)
Quarter: 2020Q1

REPORT INFORMATION
  Report Type: Spontaneous
  Country: US (occurrence: US)
  Receive Date: 20200208
  Receipt Date: 20200208
  Transmission Date: 20200409
  Serious: Yes (Other)
  Sender: FDA-Public Use
  Company Number: None

PATIENT
  Age: 23 Year
  Sex: Female
  Weight: 63 kg

DRUGS (4)
  1. BENZONATATE. [Concomitant]
     Active Substance: BENZONATATE
  2. ALBUTEROL SULFATE INHALATION SOLUTION, 0.083% 2.5MG/3ML* [Suspect]
     Active Substance: ALBUTEROL SULFATE
     Indication: BRONCHIAL HYPERREACTIVITY
     Dosage: ?          QUANTITY:30 INHALATION(S);?
     Route: 055
     Dates: start: 20200206, end: 20200208
  3. METHYLPREDNISOLONE. [Concomitant]
     Active Substance: METHYLPREDNISOLONE
  4. ALBUTEROL SULFATE HFA INHALATION AEROSOL [Concomitant]
     Active Substance: ALBUTEROL SULFATE

REACTIONS (5)
  - Hypoaesthesia [None]
  - Pain in jaw [None]
  - Paraesthesia [None]
  - Temporomandibular joint syndrome [None]
  - Trismus [None]

NARRATIVE: CASE EVENT DATE: 20200207
